FAERS Safety Report 9218529 (Version 1)
Quarter: 2013Q1

REPORT INFORMATION
  Report Type: Spontaneous
  Country: US (occurrence: None)
  Receive Date: 20120827
  Receipt Date: 20120827
  Transmission Date: 20140127
  Serious: Yes (Other)
  Sender: FDA-Public Use
  Company Number: 351098

PATIENT
  Age: 71 Year
  Sex: Male
  Weight: 91.2 kg

DRUGS (8)
  1. VICTOZA (LIRAGLUTIDE) SOLUTION FOR INJECTION, 6MG/ML [Suspect]
     Indication: TYPE 2 DIABETES MELLITUS
     Route: 058
     Dates: end: 20120418
  2. GLYNASE (GLIBENCLAMIDE) [Concomitant]
  3. METFORMIN (METFORMIN) [Concomitant]
  4. ZESTRIL (LISINOPRIL) [Concomitant]
  5. HYDROCHLORTHIAZIDE (HYDROCHLORTHIAZIDE) [Concomitant]
  6. LIPITOR (ATORVASTATIN CALCIUM) [Concomitant]
  7. ALLOPURINOL [Concomitant]
  8. ASPIRIN (ACETYLSALICYLIC ACID) [Concomitant]

REACTIONS (1)
  - Pancreatitis [None]
